FAERS Safety Report 9760332 (Version 1)
Quarter: 2013Q4

REPORT INFORMATION
  Report Type: Spontaneous
  Country: US (occurrence: US)
  Receive Date: 20131216
  Receipt Date: 20131216
  Transmission Date: 20140711
  Serious: No
  Sender: FDA-Public Use
  Company Number: US-GILEAD-2010-0029232

PATIENT
  Sex: Male
  Weight: 61.23 kg

DRUGS (11)
  1. LETAIRIS [Suspect]
     Indication: PULMONARY ARTERIAL HYPERTENSION
     Route: 048
     Dates: start: 20100422
  2. ZOCOR [Concomitant]
  3. COZAAR [Concomitant]
  4. PLAQUENIL [Concomitant]
  5. LASIX [Concomitant]
  6. PREDNISONE [Concomitant]
  7. IMURAN [Concomitant]
  8. DIGOXIN [Concomitant]
  9. TOPROL XL [Concomitant]
  10. KEPPRA [Concomitant]
  11. WARFARIN [Concomitant]

REACTIONS (1)
  - Migraine [Unknown]
